FAERS Safety Report 8825463 (Version 1)
Quarter: 2012Q4

REPORT INFORMATION
  Report Type: 
  Country: US (occurrence: US)
  Receive Date: 20121004
  Receipt Date: 20121004
  Transmission Date: 20130627
  Serious: No
  Sender: FDA-Public Use
  Company Number: US-009507513-1210USA001480

PATIENT
  Sex: Male

DRUGS (1)
  1. PROSCAR [Suspect]
     Indication: BENIGN PROSTATIC HYPERPLASIA
     Dosage: 2.5 mg, qd
     Route: 048
     Dates: end: 20120807

REACTIONS (1)
  - Prostatic specific antigen decreased [Not Recovered/Not Resolved]
